FAERS Safety Report 8393024-3 (Version None)
Quarter: 2012Q2

REPORT INFORMATION
  Report Type: 
  Country: None (occurrence: None)
  Receive Date: 20120529
  Receipt Date: 20120315
  Transmission Date: 20120825
  Serious: No
  Sender: FDA-Public Use
  Company Number: US-ABBOTT-12P-163-0917288-00

PATIENT
  Sex: Male
  Weight: 118.04 kg

DRUGS (7)
  1. OMEPRAZOLE [Concomitant]
     Indication: PRODUCT USED FOR UNKNOWN INDICATION
     Dosage: 1 IN 12 HOURS, IN MORNING AND EVENING
     Route: 048
  2. ANDROGEL [Suspect]
     Dosage: 4 PUMPS DAILY
     Route: 061
     Dates: end: 20120101
  3. EDEMAX [Concomitant]
     Indication: ANTIINFLAMMATORY THERAPY
     Route: 048
  4. VITAMIN D [Concomitant]
     Indication: PRODUCT USED FOR UNKNOWN INDICATION
     Route: 048
  5. DILAUDID [Concomitant]
     Indication: PAIN
     Dosage: PRN, NO MORE THAN 2 TABS EVERY 4 HOURS
     Route: 048
  6. KADIAN [Concomitant]
     Indication: PAIN
     Route: 048
  7. ANDROGEL [Suspect]
     Indication: BLOOD TESTOSTERONE DECREASED
     Dosage: 6 PUMPS DAILY
     Route: 061
     Dates: start: 20120101

REACTIONS (6)
  - BLOOD TESTOSTERONE DECREASED [None]
  - DRUG INEFFECTIVE [None]
  - GYNAECOMASTIA [None]
  - FATIGUE [None]
  - ASTHENIA [None]
  - LIBIDO DECREASED [None]
